FAERS Safety Report 11833183 (Version 1)
Quarter: 2015Q4

REPORT INFORMATION
  Report Type: Spontaneous
  Country: US (occurrence: US)
  Receive Date: 20151214
  Receipt Date: 20151214
  Transmission Date: 20160305
  Serious: No
  Sender: FDA-Public Use
  Company Number: US-AKRON, INC.-1045456

PATIENT
  Age: 69 Year
  Sex: Female
  Weight: 80 kg

DRUGS (10)
  1. TRAVATAN [Concomitant]
     Active Substance: TRAVOPROST
  2. VALIUM [Concomitant]
     Active Substance: DIAZEPAM
  3. LASIX [Concomitant]
     Active Substance: FUROSEMIDE
  4. LISINOPRIL. [Concomitant]
     Active Substance: LISINOPRIL
  5. COUMADIN [Concomitant]
     Active Substance: WARFARIN SODIUM
  6. DORZOLAMIDE HCL AND TIMOLOL MALEATE [Suspect]
     Active Substance: DORZOLAMIDE HYDROCHLORIDE\TIMOLOL MALEATE
     Indication: GLAUCOMA
     Route: 047
  7. AMLODIPINE [Concomitant]
     Active Substance: AMLODIPINE BESYLATE
  8. SYNTHROID [Concomitant]
     Active Substance: LEVOTHYROXINE SODIUM
  9. BRIMONIDINE [Concomitant]
     Active Substance: BRIMONIDINE TARTRATE
  10. POTASSIUM CHLORIDE. [Concomitant]
     Active Substance: POTASSIUM CHLORIDE

REACTIONS (4)
  - Insomnia [Not Recovered/Not Resolved]
  - Restlessness [Not Recovered/Not Resolved]
  - Pollakiuria [Not Recovered/Not Resolved]
  - Confusional state [Not Recovered/Not Resolved]
